FAERS Safety Report 22317068 (Version 1)
Quarter: 2023Q2

REPORT INFORMATION
  Report Type: Other
  Country: FR (occurrence: FR)
  Receive Date: 20230514
  Receipt Date: 20230514
  Transmission Date: 20230721
  Serious: Yes (Life-Threatening, Other)
  Sender: FDA-Public Use
  Company Number: FR-CELLTRION INC.-2023FR009912

PATIENT

DRUGS (25)
  1. RITUXIMAB [Suspect]
     Active Substance: RITUXIMAB
     Indication: Follicular lymphoma
     Dosage: UNK
     Route: 042
     Dates: start: 201606, end: 201612
  2. RITUXIMAB [Suspect]
     Active Substance: RITUXIMAB
     Dosage: UNK
     Route: 042
     Dates: start: 201901, end: 201907
  3. RITUXIMAB [Suspect]
     Active Substance: RITUXIMAB
     Dosage: UNK
     Route: 042
     Dates: start: 201908, end: 202103
  4. VINCRISTINE SULFATE [Suspect]
     Active Substance: VINCRISTINE SULFATE
     Indication: Follicular lymphoma
     Dosage: UNK
     Route: 042
     Dates: start: 201606, end: 201612
  5. OXALIPLATIN [Suspect]
     Active Substance: OXALIPLATIN
     Indication: Follicular lymphoma
     Dosage: UNK
     Route: 042
     Dates: start: 2021, end: 2021
  6. REVLIMID [Suspect]
     Active Substance: LENALIDOMIDE
     Indication: Follicular lymphoma
     Dosage: 21 DF EVERY 28 DAYS
     Route: 048
     Dates: start: 202207, end: 202302
  7. OXAZEPAM [Suspect]
     Active Substance: OXAZEPAM
     Indication: Anxiety
     Dosage: 2 DF, QD
     Route: 048
  8. DOXORUBICIN [Suspect]
     Active Substance: DOXORUBICIN
     Indication: Follicular lymphoma
     Dosage: UNK
     Route: 042
     Dates: start: 201606, end: 201612
  9. MELPHALAN [Suspect]
     Active Substance: MELPHALAN
     Indication: Follicular lymphoma
     Dosage: UNK
     Route: 042
     Dates: start: 201907, end: 201907
  10. CARMUSTINE [Suspect]
     Active Substance: CARMUSTINE
     Indication: Follicular lymphoma
     Dosage: UNK
     Route: 048
     Dates: start: 201907, end: 201907
  11. LEUCOVORIN CALCIUM [Suspect]
     Active Substance: LEUCOVORIN CALCIUM
     Indication: Vitamin supplementation
     Dosage: 1 DF, 1/WEEK
     Route: 048
  12. ATENOLOL [Suspect]
     Active Substance: ATENOLOL
     Indication: Extrasystoles
     Dosage: 100 MG, QD
     Route: 048
  13. SERTRALINE [Suspect]
     Active Substance: SERTRALINE HYDROCHLORIDE
     Indication: Depression
     Dosage: 200 MG, QD
     Route: 048
  14. DEXAMETHASONE [Suspect]
     Active Substance: DEXAMETHASONE
     Indication: Follicular lymphoma
     Dosage: 40 MG
     Route: 048
  15. GEMCITABINE [Suspect]
     Active Substance: GEMCITABINE
     Indication: Follicular lymphoma
     Dosage: UNK
     Route: 042
     Dates: start: 2021, end: 2021
  16. CARBOPLATIN [Suspect]
     Active Substance: CARBOPLATIN
     Indication: Follicular lymphoma
     Dosage: UNK
     Route: 042
     Dates: start: 201901, end: 201907
  17. PREDNISONE [Suspect]
     Active Substance: PREDNISONE
     Indication: Follicular lymphoma
     Dosage: UNK
     Route: 042
     Dates: start: 201606, end: 201612
  18. CYCLOPHOSPHAMIDE [Suspect]
     Active Substance: CYCLOPHOSPHAMIDE
     Indication: Follicular lymphoma
     Dosage: UNK
     Route: 042
     Dates: start: 201606, end: 201612
  19. CYTARABINE [Suspect]
     Active Substance: CYTARABINE
     Indication: Follicular lymphoma
     Dosage: UNK
     Route: 042
  20. BACTRIM [Suspect]
     Active Substance: SULFAMETHOXAZOLE\TRIMETHOPRIM
     Indication: Pneumocystis jirovecii pneumonia
     Dosage: 3 DF, 1/WEEK
     Route: 048
  21. ETOPOSIDE [Suspect]
     Active Substance: ETOPOSIDE
     Indication: Follicular lymphoma
     Dosage: UNK
     Route: 042
     Dates: start: 201907, end: 201907
  22. VALACYCLOVIR HYDROCHLORIDE [Suspect]
     Active Substance: VALACYCLOVIR HYDROCHLORIDE
     Indication: Antiviral prophylaxis
     Dosage: 1000 MG, QD
     Route: 048
  23. MONJUVI [Suspect]
     Active Substance: TAFASITAMAB-CXIX
     Indication: Follicular lymphoma
     Dosage: UNK
     Route: 048
     Dates: start: 202207
  24. PENICILLIN V [Suspect]
     Active Substance: PENICILLIN V
     Indication: Antibiotic prophylaxis
     Dosage: 2 DF, 1/WEEK
     Route: 048
  25. KARDEGIC [Suspect]
     Active Substance: ASPIRIN DL-LYSINE
     Indication: Cardiovascular event prophylaxis
     Dosage: 1 DF, 1/WEEK
     Route: 048

REACTIONS (1)
  - Gastric cancer [Not Recovered/Not Resolved]

NARRATIVE: CASE EVENT DATE: 20230207
